FAERS Safety Report 17379579 (Version 1)
Quarter: 2020Q1

REPORT INFORMATION
  Report Type: Report from Study
  Country: GB (occurrence: GB)
  Receive Date: 20200206
  Receipt Date: 20200206
  Transmission Date: 20200409
  Serious: Yes (Other)
  Sender: FDA-Public Use
  Company Number: GB-PFIZER INC-2020047291

PATIENT
  Age: 45 Year
  Sex: Male

DRUGS (3)
  1. COPAXONE [Interacting]
     Active Substance: GLATIRAMER ACETATE
     Dosage: UNK, WEEKLY (^3^)
     Route: 058
     Dates: start: 2017
  2. AMLODIPINE BESILATE [Suspect]
     Active Substance: AMLODIPINE BESYLATE
     Dosage: UNK
     Route: 065
  3. RAMIPRIL. [Interacting]
     Active Substance: RAMIPRIL
     Dosage: UNK
     Route: 065

REACTIONS (8)
  - Chest discomfort [Unknown]
  - Dysgeusia [Unknown]
  - Tinnitus [Unknown]
  - Blindness transient [Unknown]
  - Drug interaction [Unknown]
  - Spinal pain [Unknown]
  - Dyspnoea [Unknown]
  - Malaise [Unknown]
